FAERS Safety Report 13219389 (Version 1)
Quarter: 2017Q1

REPORT INFORMATION
  Report Type: Other
  Country: US (occurrence: US)
  Receive Date: 20170210
  Receipt Date: 20170210
  Transmission Date: 20170428
  Serious: Yes (Hospitalization, Other)
  Sender: FDA-Public Use
  Company Number: US-ACORDA-ACO_127480_2016

PATIENT
  Sex: Female

DRUGS (1)
  1. AMPYRA [Suspect]
     Active Substance: DALFAMPRIDINE
     Indication: PRODUCT USED FOR UNKNOWN INDICATION
     Dosage: UNK
     Route: 065
     Dates: start: 20150924, end: 20160816

REACTIONS (4)
  - Urinary tract infection [Recovering/Resolving]
  - Cellulitis [Recovering/Resolving]
  - Sepsis [Recovering/Resolving]
  - Coma [Recovered/Resolved]
